FAERS Safety Report 10679930 (Version 7)
Quarter: 2015Q3

REPORT INFORMATION
  Report Type: Report from Study
  Country: CA (occurrence: CA)
  Receive Date: 20141229
  Receipt Date: 20150805
  Transmission Date: 20151125
  Serious: Yes (Hospitalization, Other)
  Sender: FDA-Public Use
  Company Number: PHHY2014CA153854

PATIENT
  Age: 58 Year
  Sex: Male

DRUGS (7)
  1. HALOPERIDOL. [Concomitant]
     Active Substance: HALOPERIDOL
     Indication: PRODUCT USED FOR UNKNOWN INDICATION
     Dosage: 10 MG, QID
     Route: 030
  2. COGENTIN [Concomitant]
     Active Substance: BENZTROPINE MESYLATE
     Indication: PRODUCT USED FOR UNKNOWN INDICATION
     Dosage: 2 MG, BID
     Route: 030
  3. CLOZARIL [Suspect]
     Active Substance: CLOZAPINE
     Dosage: UNK
     Route: 048
     Dates: start: 20150114
  4. CLOZARIL [Suspect]
     Active Substance: CLOZAPINE
     Indication: SCHIZOPHRENIA
     Dosage: 300 (UNIT UNSPECIFIED), QD
     Route: 048
     Dates: start: 19981021, end: 20141124
  5. CLOZARIL [Suspect]
     Active Substance: CLOZAPINE
     Dosage: 375 MG, QHS
     Route: 048
  6. VALIUM [Concomitant]
     Active Substance: DIAZEPAM
     Indication: PRODUCT USED FOR UNKNOWN INDICATION
     Dosage: 5 MG, QD
     Route: 065
  7. ATIVAN [Concomitant]
     Active Substance: LORAZEPAM
     Indication: PRODUCT USED FOR UNKNOWN INDICATION
     Dosage: 2 MG, QID
     Route: 030

REACTIONS (9)
  - Agitation [Unknown]
  - Gastrointestinal obstruction [Unknown]
  - Diverticular perforation [Unknown]
  - White blood cell count decreased [Not Recovered/Not Resolved]
  - Schizophrenia [Not Recovered/Not Resolved]
  - Anaemia [Unknown]
  - Neutropenia [Recovered/Resolved]
  - Diverticulitis [Unknown]
  - Adenocarcinoma of colon [Recovered/Resolved]

NARRATIVE: CASE EVENT DATE: 201411
